FAERS Safety Report 5692118-0 (Version None)
Quarter: 2008Q2

REPORT INFORMATION
  Report Type: 
  Country: None (occurrence: None)
  Receive Date: 20080402
  Receipt Date: 20080321
  Transmission Date: 20081010
  Serious: Yes (Other)
  Sender: FDA-Public Use
  Company Number: US-PFIZER INC-2008011327

PATIENT
  Sex: Male
  Weight: 79.1 kg

DRUGS (13)
  1. DILANTIN [Suspect]
  2. DILANTIN [Suspect]
  3. PHENYTOIN [Suspect]
  4. ACETYLSALICYLIC ACID SRT [Concomitant]
  5. ACCUPRIL [Concomitant]
  6. ACTOS [Concomitant]
  7. BENICAR [Concomitant]
  8. CADUET [Concomitant]
  9. TAMSULOSIN HCL [Concomitant]
  10. NIASPAN [Concomitant]
  11. AVODART [Concomitant]
  12. SYNTHROID [Concomitant]
  13. MONTELUKAST SODIUM [Concomitant]

REACTIONS (7)
  - ASTHMA [None]
  - CONVULSION [None]
  - DIZZINESS [None]
  - HYPOTHYROIDISM [None]
  - PRURITUS [None]
  - RASH ERYTHEMATOUS [None]
  - URTICARIA [None]
